FAERS Safety Report 9205346 (Version 1)
Quarter: 2013Q2

REPORT INFORMATION
  Report Type: Spontaneous
  Country: US (occurrence: US)
  Receive Date: 20130402
  Receipt Date: 20130402
  Transmission Date: 20140414
  Serious: Yes (Other)
  Sender: FDA-Public Use
  Company Number: US-PFIZER INC-2013100677

PATIENT
  Age: 32 Year
  Sex: Female

DRUGS (12)
  1. SOMAVERT [Suspect]
     Indication: ACROMEGALY
     Dosage: 15 MG, (7 DAYS PER WEEK)
     Route: 058
  2. SOMAVERT [Suspect]
     Indication: GIGANTISM
  3. SOMATULINE DEPOT [Concomitant]
     Dosage: 120 MG, EVERY 4 WEEKS
     Route: 058
  4. PRILOSEC [Concomitant]
     Dosage: 40 MG, UNK
  5. MONONESSA [Concomitant]
     Dosage: UNK (28)
  6. PERCOCET [Concomitant]
     Dosage: 2.5-325 MG
  7. SINGULAIR [Concomitant]
     Dosage: 5 MG, UNK
  8. SYNTHROID [Concomitant]
     Dosage: 112 UG, UNK
  9. LISINOPRIL [Concomitant]
     Dosage: 20 MG, UNK
  10. ADVAIR DISKUS [Concomitant]
     Dosage: 250-50 UNK, INHALER
  11. VERAPAMIL ER [Concomitant]
     Dosage: 120 MG, UNK
  12. AMBIEN [Concomitant]
     Dosage: 10 MG, UNK

REACTIONS (2)
  - Cellulitis [Not Recovered/Not Resolved]
  - Photosensitivity reaction [Not Recovered/Not Resolved]
